FAERS Safety Report 24153136 (Version 1)
Quarter: 2024Q3

REPORT INFORMATION
  Report Type: Spontaneous
  Country: AU (occurrence: AU)
  Receive Date: 20240730
  Receipt Date: 20240730
  Transmission Date: 20241017
  Serious: Yes (Other)
  Sender: AMERICAN REGENT
  Company Number: AU-AMERICAN REGENT INC-2024002900

PATIENT
  Sex: Female

DRUGS (1)
  1. FERINJECT [Suspect]
     Active Substance: FERRIC CARBOXYMALTOSE
     Indication: Iron deficiency
     Dosage: 1 GRAM, DILUTED IN 500 ML IN NORMAL SALINE
     Dates: start: 20240527, end: 20240527

REACTIONS (4)
  - Pericardial effusion [Recovering/Resolving]
  - Skin reaction [Recovering/Resolving]
  - Chest pain [Not Recovered/Not Resolved]
  - Urticaria [Recovering/Resolving]

NARRATIVE: CASE EVENT DATE: 20240101
